FAERS Safety Report 5898214-7 (Version None)
Quarter: 2008Q3

REPORT INFORMATION
  Report Type: 
  Country: None (occurrence: None)
  Receive Date: 20080919
  Receipt Date: 20080530
  Transmission Date: 20090109
  Serious: No
  Sender: FDA-Public Use
  Company Number: APP200800476

PATIENT
  Age: 52 Year
  Sex: Female
  Weight: 87.9978 kg

DRUGS (7)
  1. IRINOTECAN HYDROCHLORIDE [Suspect]
     Indication: COLON CANCER
     Dosage: 280 MG, 1 IN 14 D, INTRAVENOUS DRIP
     Route: 041
     Dates: start: 20080407
  2. KYTRIL [Concomitant]
  3. DEXAMETHASONE TAB [Concomitant]
  4. ATROPINE [Concomitant]
  5. ZOFRAN [Concomitant]
  6. PROTONIX [Concomitant]
  7. MULTIVITAMIN [Concomitant]

REACTIONS (1)
  - HYPERSENSITIVITY [None]
